FAERS Safety Report 6138600-3 (Version None)
Quarter: 2009Q1

REPORT INFORMATION
  Report Type: 
  Country: None (occurrence: None)
  Receive Date: 20090327
  Receipt Date: 20090317
  Transmission Date: 20090719
  Serious: Yes (Life-Threatening, Hospitalization)
  Sender: FDA-Public Use
  Company Number: 188582USA

PATIENT
  Age: 83 Year
  Sex: Female

DRUGS (10)
  1. BISOPROLOL FUMARATE [Suspect]
     Indication: ATRIAL FIBRILLATION
     Dosage: 1 DOSAGE FORMS, 1 IN 1 D (5 MG,1 IN 1 D),ORAL
     Route: 048
     Dates: start: 20090104
  2. AMLODIPINE BESYLATE [Concomitant]
  3. FUROSEMIDE [Concomitant]
  4. DIGOXIN [Concomitant]
  5. CAPTOPRIL [Concomitant]
  6. GLICLAZIDE [Concomitant]
  7. COLCHIMAX [Concomitant]
  8. RAMIPRIL [Concomitant]
  9. FLUINDIONE [Concomitant]
  10. POTASSIUM CHLORIDE [Concomitant]

REACTIONS (4)
  - ATRIOVENTRICULAR BLOCK COMPLETE [None]
  - HYPERKALAEMIA [None]
  - OVERDOSE [None]
  - RENAL FAILURE ACUTE [None]
